FAERS Safety Report 13961088 (Version 1)
Quarter: 2017Q3

REPORT INFORMATION
  Report Type: Spontaneous
  Country: US (occurrence: US)
  Receive Date: 20170912
  Receipt Date: 20170912
  Transmission Date: 20171128
  Serious: No
  Sender: FDA-Public Use
  Company Number: US-GLAXOSMITHKLINE-US2017137825

PATIENT
  Age: 74 Year
  Sex: Female

DRUGS (2)
  1. VOLTAREN [Suspect]
     Active Substance: DICLOFENAC SODIUM
     Dosage: 4 G, BID
     Route: 061
     Dates: start: 20170830, end: 20170830
  2. VOLTAREN [Suspect]
     Active Substance: DICLOFENAC SODIUM
     Indication: ARTHRALGIA
     Dosage: 2 G, BID
     Route: 061
     Dates: start: 20170829, end: 20170830

REACTIONS (3)
  - Drug ineffective [Unknown]
  - Underdose [Unknown]
  - Inappropriate schedule of drug administration [Unknown]
